FAERS Safety Report 10695663 (Version 1)
Quarter: 2015Q1

REPORT INFORMATION
  Report Type: Spontaneous
  Country: BE (occurrence: None)
  Receive Date: 20150105
  Receipt Date: 20150105
  Transmission Date: 20150721
  Serious: Yes (Other)
  Sender: FDA-Public Use
  Company Number: 2014COR00155

PATIENT
  Age: 30 Year
  Sex: Female

DRUGS (1)
  1. GLYBURIDE. [Suspect]
     Active Substance: GLYBURIDE
     Indication: DIABETES MELLITUS
     Route: 048

REACTIONS (4)
  - Caesarean section [None]
  - Premature delivery [None]
  - Maternal exposure during pregnancy [None]
  - Macrosomia [None]
